FAERS Safety Report 8906203 (Version 1)
Quarter: 2012Q4

REPORT INFORMATION
  Report Type: Spontaneous
  Country: US (occurrence: None)
  Receive Date: 20121112
  Receipt Date: 20121112
  Transmission Date: 20130627
  Serious: Yes (Life-Threatening, Hospitalization, Disabling, Other)
  Sender: FDA-Public Use
  Company Number: None

PATIENT
  Age: 42 Year
  Sex: Male
  Weight: 90.72 kg

DRUGS (1)
  1. CIPROFLOXACN [Suspect]
     Indication: PROSTATE INFECTION
     Dosage: 1 tablet 2 times per day po
     Route: 048
     Dates: start: 20101110, end: 20110204

REACTIONS (18)
  - Arthralgia [None]
  - Hypoaesthesia [None]
  - Paraesthesia [None]
  - Burning sensation [None]
  - Arthralgia [None]
  - Tremor [None]
  - Abasia [None]
  - Wheelchair user [None]
  - Visual impairment [None]
  - Pain [None]
  - Tremor [None]
  - Hypoaesthesia [None]
  - Asthenia [None]
  - Insomnia [None]
  - Nodule [None]
  - Tendon disorder [None]
  - Fall [None]
  - Arthropathy [None]
